FAERS Safety Report 7415859-3 (Version None)
Quarter: 2011Q2

REPORT INFORMATION
  Report Type: 
  Country: None (occurrence: None)
  Receive Date: 20110405
  Receipt Date: 20110322
  Transmission Date: 20111010
  Serious: Yes (Hospitalization, Other)
  Sender: FDA-Public Use
  Company Number: 2011MA002750

PATIENT
  Age: 50 Year
  Sex: Female

DRUGS (1)
  1. OXYCODONE HCL [Suspect]
     Indication: ANALGESIC THERAPY
     Dosage: 160 MG;PO
     Route: 048
     Dates: start: 20100101

REACTIONS (9)
  - TREMOR [None]
  - DRUG INEFFECTIVE [None]
  - NAUSEA [None]
  - HYPERHIDROSIS [None]
  - RENAL IMPAIRMENT [None]
  - MUSCLE SPASMS [None]
  - ABDOMINAL PAIN [None]
  - AGITATION [None]
  - DRUG WITHDRAWAL SYNDROME [None]
